FAERS Safety Report 8881666 (Version 1)
Quarter: 2012Q4

REPORT INFORMATION
  Report Type: 
  Country: US (occurrence: US)
  Receive Date: 20121102
  Receipt Date: 20121102
  Transmission Date: 20130627
  Serious: Yes (Hospitalization)
  Sender: FDA-Public Use
  Company Number: PHHO2012US014486

PATIENT
  Age: 41 Year
  Sex: Male
  Weight: 184.9 kg

DRUGS (4)
  1. INVESTIGATIONAL DRUG [Suspect]
     Indication: NEOPLASM
     Dosage: 45 mg, BID
     Route: 048
     Dates: start: 20120914, end: 20121003
  2. INVESTIGATIONAL DRUG [Suspect]
     Indication: NEOPLASM
     Dosage: 80 mg, QD
     Route: 048
     Dates: start: 20120914, end: 20121003
  3. LEVOFLOXACIN [Suspect]
     Indication: INFECTION
     Dosage: UNK
     Dates: start: 2012, end: 2012
  4. RADIATION THERAPY [Suspect]
     Indication: NEOPLASM MALIGNANT
     Dosage: UNK
     Dates: start: 20121026, end: 20121026

REACTIONS (3)
  - Soft tissue infection [Unknown]
  - Nausea [Not Recovered/Not Resolved]
  - Vomiting [Not Recovered/Not Resolved]
